FAERS Safety Report 18786535 (Version 1)
Quarter: 2021Q1

REPORT INFORMATION
  Report Type: Other
  Country: US (occurrence: US)
  Receive Date: 20210125
  Receipt Date: 20210125
  Transmission Date: 20210419
  Serious: No
  Sender: FDA-Public Use
  Company Number: US-ACORDA-ACO_163511_2020

PATIENT
  Sex: Female

DRUGS (1)
  1. AMPYRA [Suspect]
     Active Substance: DALFAMPRIDINE
     Indication: NERVE INJURY
     Dosage: 10 MILLIGRAM, BID
     Route: 048

REACTIONS (4)
  - Malaise [Unknown]
  - Influenza [Unknown]
  - Abdominal discomfort [Unknown]
  - Product dose omission issue [Unknown]
